FAERS Safety Report 6266744-4 (Version None)
Quarter: 2009Q3

REPORT INFORMATION
  Report Type: 
  Country: None (occurrence: None)
  Receive Date: 20090710
  Receipt Date: 20090710
  Transmission Date: 20100115
  Serious: Yes (Hospitalization, Other)
  Sender: FDA-Public Use
  Company Number: None

PATIENT
  Age: 31 Year
  Sex: Male
  Weight: 117.9352 kg

DRUGS (5)
  1. LYRICA [Suspect]
     Indication: NEUROPATHY PERIPHERAL
     Dosage: 200MG TID ORAL
     Route: 048
     Dates: start: 20070101, end: 20090101
  2. WELLBUTRIN [Concomitant]
  3. LEXAPRO [Concomitant]
  4. DURAGESIC-100 [Concomitant]
  5. LYRICA [Concomitant]

REACTIONS (4)
  - ANXIETY [None]
  - DRUG WITHDRAWAL SYNDROME [None]
  - FEELING OF BODY TEMPERATURE CHANGE [None]
  - VIRAL INFECTION [None]
